FAERS Safety Report 8483912-1 (Version None)
Quarter: 2012Q2

REPORT INFORMATION
  Report Type: 
  Country: None (occurrence: None)
  Receive Date: 20120402
  Receipt Date: 20110513
  Transmission Date: 20120825
  Serious: Yes (Hospitalization)
  Sender: FDA-Public Use
  Company Number: A-US2011-48788

PATIENT
  Age: 24 Year
  Sex: Female

DRUGS (2)
  1. SILDENAFIL CITRATE [Concomitant]
  2. EPOPROSTENOL SODIUM [Suspect]
     Indication: PULMONARY ARTERIAL HYPERTENSION
     Dosage: 20 NG/KG, PER MIN, INTRAVENOUS
     Route: 042
     Dates: start: 20100924

REACTIONS (2)
  - COUGH [None]
  - DIARRHOEA [None]
